FAERS Safety Report 16945027 (Version 2)
Quarter: 2019Q4

REPORT INFORMATION
  Report Type: Spontaneous
  Country: IT (occurrence: IT)
  Receive Date: 20191022
  Receipt Date: 20191114
  Transmission Date: 20200122
  Serious: Yes (Other)
  Sender: FDA-Public Use
  Company Number: IT-ASTRAZENECA-2019SF47423

PATIENT
  Sex: Male

DRUGS (9)
  1. TAGRISSO [Suspect]
     Active Substance: OSIMERTINIB
     Indication: NON-SMALL CELL LUNG CANCER STAGE IV
     Route: 048
     Dates: start: 20181228, end: 20190913
  2. DIBASE [Concomitant]
     Active Substance: CHOLECALCIFEROL
  3. ENOXAPARIN [Concomitant]
     Active Substance: ENOXAPARIN
  4. ATARAX [Concomitant]
     Active Substance: HYDROXYZINE HYDROCHLORIDE
  5. ABSTRAL [Concomitant]
     Active Substance: FENTANYL CITRATE
  6. CARBOPLATIN. [Concomitant]
     Active Substance: CARBOPLATIN
  7. PEMETREXED. [Concomitant]
     Active Substance: PEMETREXED
  8. FENTANYL. [Concomitant]
     Active Substance: FENTANYL
  9. NATECAL [Concomitant]
     Active Substance: CALCIUM CARBONATE\CHOLECALCIFEROL

REACTIONS (1)
  - Malignant neoplasm progression [Unknown]
